FAERS Safety Report 5356411-3 (Version None)
Quarter: 2007Q2

REPORT INFORMATION
  Report Type: 
  Country: None (occurrence: None)
  Receive Date: 20070613
  Receipt Date: 20070608
  Transmission Date: 20071010
  Serious: Yes (Other)
  Sender: FDA-Public Use
  Company Number: JP-MERCK-0706USA01764

PATIENT
  Age: 67 Year
  Sex: Male

DRUGS (1)
  1. PROPECIA [Suspect]
     Indication: MALE PATTERN BALDNESS
     Route: 048
     Dates: start: 20070308, end: 20070517

REACTIONS (3)
  - ARTHRALGIA [None]
  - MYALGIA [None]
  - STOMACH DISCOMFORT [None]
